FAERS Safety Report 18499130 (Version 1)
Quarter: 2020Q4

REPORT INFORMATION
  Report Type: Other
  Country: US (occurrence: US)
  Receive Date: 20201112
  Receipt Date: 20201112
  Transmission Date: 20210114
  Serious: Yes (Death)
  Sender: FDA-Public Use
  Company Number: US-SERVIER-S20011188

PATIENT

DRUGS (3)
  1. ONCASPAR [Suspect]
     Active Substance: PEGASPARGASE
     Indication: NON-HODGKIN^S LYMPHOMA
     Dosage: 2500 IU/M2, EVERY 2 WEEKS
     Route: 065
  2. TN UNSPECIFIED [DEXAMETHASONE] [Suspect]
     Active Substance: DEXAMETHASONE
     Indication: NON-HODGKIN^S LYMPHOMA
     Dosage: UNK
     Route: 065
  3. TN UNSPECIFIED [PREDNISONE] [Suspect]
     Active Substance: PREDNISONE
     Indication: NON-HODGKIN^S LYMPHOMA
     Dosage: 1120 MG/M2 OVER 28 DAYS

REACTIONS (1)
  - Precursor T-lymphoblastic lymphoma/leukaemia recurrent [Fatal]

NARRATIVE: CASE EVENT DATE: 2020
